FAERS Safety Report 17325497 (Version 2)
Quarter: 2020Q2

REPORT INFORMATION
  Report Type: Report from Study
  Country: None (occurrence: TR)
  Receive Date: 20200127
  Receipt Date: 20200406
  Transmission Date: 20200713
  Serious: Yes (Hospitalization, Other)
  Sender: FDA-Public Use
  Company Number: TR-ABBVIE-19K-161-3211658-00

PATIENT
  Age: 67 Year
  Sex: Female

DRUGS (2)
  1. DUODOPA [Suspect]
     Active Substance: CARBIDOPA\LEVODOPA
     Dosage: MORNING DOSE (ML): 0.00 CONTINUOUS DOSE (ML): 2.00 EXTRA DOSE ML): 1.00
     Route: 050
     Dates: start: 20191225, end: 20200120
  2. DUODOPA [Suspect]
     Active Substance: CARBIDOPA\LEVODOPA
     Indication: PARKINSON^S DISEASE
     Dosage: MORNING DOSE (ML): 0.00 CONTINUOUS DOSE (ML): 2.00 EXTRA DOSE (ML): 1.00
     Route: 050
     Dates: start: 20150829, end: 20191217

REACTIONS (5)
  - Stoma site infection [Recovered/Resolved]
  - Stoma site erythema [Recovering/Resolving]
  - Stoma site pain [Recovered/Resolved]
  - Hypophagia [Recovered/Resolved]
  - Stoma site discharge [Recovering/Resolving]

NARRATIVE: CASE EVENT DATE: 20200120
